FAERS Safety Report 5935662-0 (Version None)
Quarter: 2008Q4

REPORT INFORMATION
  Report Type: 
  Country: None (occurrence: None)
  Receive Date: 20081029
  Receipt Date: 20081029
  Transmission Date: 20090506
  Serious: No
  Sender: FDA-Public Use
  Company Number: None

PATIENT
  Age: 22 Year
  Sex: Female
  Weight: 53.0709 kg

DRUGS (4)
  1. METRONIDAZOLE [Suspect]
     Indication: FUNGAL INFECTION
     Dosage: 1 TABLET 3X DAILY FOR 5 DAYS
     Dates: start: 20080904, end: 20080910
  2. METRONIDAZOLE [Suspect]
     Indication: VAGINITIS BACTERIAL
     Dosage: 1 TABLET 3X DAILY FOR 5 DAYS
     Dates: start: 20080904, end: 20080910
  3. METRONIDAZOLE [Suspect]
     Indication: FUNGAL INFECTION
     Dosage: 1 APPLICATOR 2X DAILY
     Route: 067
     Dates: start: 20080904, end: 20080910
  4. METRONIDAZOLE [Suspect]
     Indication: VAGINITIS BACTERIAL
     Dosage: 1 APPLICATOR 2X DAILY
     Route: 067
     Dates: start: 20080904, end: 20080910

REACTIONS (8)
  - ABDOMINAL DISTENSION [None]
  - COITAL BLEEDING [None]
  - DYSMENORRHOEA [None]
  - MENORRHAGIA [None]
  - MENSTRUATION IRREGULAR [None]
  - VAGINAL DISCHARGE [None]
  - VAGINAL DISORDER [None]
  - VAGINAL HAEMORRHAGE [None]
